FAERS Safety Report 16403774 (Version 1)
Quarter: 2019Q2

REPORT INFORMATION
  Report Type: Spontaneous
  Country: US (occurrence: US)
  Receive Date: 20190607
  Receipt Date: 20190607
  Transmission Date: 20190711
  Serious: No
  Sender: FDA-Public Use
  Company Number: US-SUNOVION-2019SUN002244

PATIENT
  Sex: Female

DRUGS (2)
  1. MELATONIN [Concomitant]
     Active Substance: MELATONIN
  2. ESZOPICLONE. [Suspect]
     Active Substance: ESZOPICLONE
     Dosage: 1 MG
     Route: 048

REACTIONS (1)
  - Cough [Unknown]
